FAERS Safety Report 16637323 (Version 1)
Quarter: 2019Q3

REPORT INFORMATION
  Report Type: Spontaneous
  Country: ES (occurrence: ES)
  Receive Date: 20190726
  Receipt Date: 20190726
  Transmission Date: 20191004
  Serious: Yes (Life-Threatening, Hospitalization)
  Sender: FDA-Public Use
  Company Number: ES-PFIZER INC-2019316945

PATIENT
  Age: 20 Year
  Sex: Female

DRUGS (7)
  1. AMCHAFIBRIN [Suspect]
     Active Substance: TRANEXAMIC ACID
     Indication: UTERINE ATONY
     Route: 042
     Dates: start: 20190603, end: 20190603
  2. VOLUVEN FRESENIUS [Concomitant]
     Indication: UTERINE ATONY
     Dosage: 6%
     Route: 042
     Dates: start: 20190603, end: 20190603
  3. CYTOTEC [Suspect]
     Active Substance: MISOPROSTOL
     Indication: UTERINE ATONY
     Route: 054
     Dates: start: 20190603, end: 20190603
  4. METHERGIN [Suspect]
     Active Substance: METHYLERGONOVINE MALEATE
     Indication: UTERINE ATONY
     Route: 030
     Dates: start: 20190603, end: 20190603
  5. MISOFAR [Concomitant]
     Indication: LABOUR INDUCTION
     Route: 067
     Dates: start: 20190603, end: 20190603
  6. OXYTOCIN. [Suspect]
     Active Substance: OXYTOCIN
     Indication: UTERINE ATONY
     Route: 042
     Dates: start: 20190603, end: 20190603
  7. INIBSACAIN [Concomitant]
     Indication: EPIDURAL ANALGESIA
     Route: 065
     Dates: start: 20190603, end: 20190603

REACTIONS (5)
  - Seizure [Recovered/Resolved]
  - Depressed level of consciousness [Recovered/Resolved]
  - Product use in unapproved indication [Unknown]
  - Off label use [Unknown]
  - Respiratory failure [Recovered/Resolved]

NARRATIVE: CASE EVENT DATE: 20190603
